FAERS Safety Report 4338782-X (Version None)
Quarter: 2004Q2

REPORT INFORMATION
  Report Type: 
  Country: None (occurrence: None)
  Receive Date: 20040409
  Receipt Date: 20040324
  Transmission Date: 20050107
  Serious: Yes (Other)
  Sender: FDA-Public Use
  Company Number: US-0403101870

PATIENT
  Age: 71 Year
  Sex: Female

DRUGS (2)
  1. EVISTA [Suspect]
     Dates: start: 20030101
  2. FOSAMAX [Concomitant]

REACTIONS (1)
  - ANKLE FRACTURE [None]
